FAERS Safety Report 8829398 (Version 1)
Quarter: 2012Q4

REPORT INFORMATION
  Report Type: Spontaneous
  Country: FR (occurrence: None)
  Receive Date: 20121004
  Receipt Date: 20121004
  Transmission Date: 20130627
  Serious: Yes (Life-Threatening)
  Sender: FDA-Public Use
  Company Number: FK201202844

PATIENT
  Age: 65 Year
  Sex: Female

DRUGS (8)
  1. PROPOFOL FRESENIUS [Suspect]
     Indication: GENERAL ANAESTHESIA
     Dosage: (not otherwise specified)
     Route: 042
     Dates: start: 20120904, end: 20120904
  2. SUFENTANIL [Suspect]
     Indication: PRODUCT USED FOR UNKNOWN INDICATION
  3. ATRACURIUM [Suspect]
  4. KARDEGIC (ACETYLSALICYLATE LYSINE) [Concomitant]
  5. PREVISCAN (PENTOXIFYLLINE) [Concomitant]
  6. LERCAN (LERCANIDIPINE HYDROCHLORIDE) [Concomitant]
  7. MEDIATENSYL (URAPIDIL) [Concomitant]
  8. FOZIRETIC (ELIDIUR) [Concomitant]

REACTIONS (1)
  - Anaphylactic shock [None]
